FAERS Safety Report 25858930 (Version 1)
Quarter: 2025Q3

REPORT INFORMATION
  Report Type: Spontaneous
  Country: US (occurrence: US)
  Receive Date: 20250929
  Receipt Date: 20250929
  Transmission Date: 20251020
  Serious: Yes (Other)
  Sender: LUNDBECK
  Company Number: US-LUNDBECK-DKLU4019766

PATIENT
  Age: 46 Year
  Sex: Female

DRUGS (3)
  1. NORTHERA [Suspect]
     Active Substance: DROXIDOPA
     Indication: Orthostatic hypotension
     Route: 048
     Dates: start: 201907
  2. NORTHERA [Suspect]
     Active Substance: DROXIDOPA
     Dosage: AFTERNOON
     Route: 048
     Dates: start: 201907
  3. NORTHERA [Suspect]
     Active Substance: DROXIDOPA
     Dosage: 1 DOSAGE FORM
     Route: 048
     Dates: start: 201907

REACTIONS (2)
  - Loss of consciousness [Unknown]
  - Hypotension [Unknown]
